FAERS Safety Report 23558945 (Version 1)
Quarter: 2024Q1

REPORT INFORMATION
  Report Type: Spontaneous
  Country: US (occurrence: US)
  Receive Date: 20240223
  Receipt Date: 20240223
  Transmission Date: 20240410
  Serious: No
  Sender: FDA-Public Use
  Company Number: US-SCIEGENP-2024SCSPO00038

PATIENT
  Sex: Female

DRUGS (1)
  1. BUPROPION HYDROCHLORIDE [Suspect]
     Active Substance: BUPROPION HYDROCHLORIDE
     Indication: Product used for unknown indication
     Dates: start: 20240125

REACTIONS (6)
  - Dissociation [Unknown]
  - Mood altered [Unknown]
  - Anger [Unknown]
  - Hypomania [Unknown]
  - Aggression [Unknown]
  - Irritability [Unknown]

NARRATIVE: CASE EVENT DATE: 20240101
